FAERS Safety Report 11449525 (Version 2)
Quarter: 2015Q3

REPORT INFORMATION
  Report Type: Spontaneous
  Country: FR (occurrence: FR)
  Receive Date: 20150903
  Receipt Date: 20150903
  Transmission Date: 20151125
  Serious: Yes (Life-Threatening, Hospitalization, Other)
  Sender: FDA-Public Use
  Company Number: FR-BRISTOL-MYERS SQUIBB COMPANY-BMS-2015-056335

PATIENT
  Age: 59 Year
  Sex: Female

DRUGS (4)
  1. LEVACT [Suspect]
     Active Substance: BENDAMUSTINE HYDROCHLORIDE
     Indication: LYMPHOMA
     Dosage: 200 MG/M2, UNK
     Route: 042
     Dates: start: 20150714, end: 20150715
  2. ETOPOPHOS [Suspect]
     Active Substance: ETOPOSIDE PHOSPHATE
     Indication: LYMPHOMA
     Dosage: 100 MG/M2, UNK
     Route: 042
     Dates: start: 20150716, end: 20150719
  3. CYTARABINE EBEWE [Suspect]
     Active Substance: CYTARABINE
     Indication: LYMPHOMA
     Dosage: UNK
     Route: 042
     Dates: start: 201507
  4. ALKERAN [Suspect]
     Active Substance: MELPHALAN
     Indication: LYMPHOMA
     Dosage: 140 MG/M2, UNK
     Route: 042
     Dates: start: 20150720

REACTIONS (11)
  - Thrombocytopenia [Not Recovered/Not Resolved]
  - Prothrombin time shortened [Recovered/Resolved]
  - Venoocclusive disease [Recovered/Resolved]
  - Hepatitis fulminant [Recovered/Resolved]
  - Hyperbilirubinaemia [Recovered/Resolved]
  - Bone marrow failure [Unknown]
  - Encephalopathy [Recovered/Resolved]
  - Ascites [Unknown]
  - Liver transplant [Unknown]
  - Hepatocellular injury [Recovered/Resolved]
  - Weight increased [Unknown]

NARRATIVE: CASE EVENT DATE: 20150722
